FAERS Safety Report 4872059-9 (Version None)
Quarter: 2005Q4

REPORT INFORMATION
  Report Type: 
  Country: None (occurrence: None)
  Receive Date: 20051230
  Receipt Date: 20051222
  Transmission Date: 20060501
  Serious: Yes (Other)
  Sender: FDA-Public Use
  Company Number: 2005134014

PATIENT
  Age: 19 Year
  Sex: Female
  Weight: 77.1115 kg

DRUGS (7)
  1. DEPO-PROVERA [Suspect]
     Indication: CONTRACEPTION
     Dosage: SEE IMAGE, INTRAMUSCULAR
     Route: 030
     Dates: start: 20050401, end: 20050401
  2. DEPO-PROVERA [Suspect]
     Indication: CONTRACEPTION
     Dosage: SEE IMAGE, INTRAMUSCULAR
     Route: 030
     Dates: start: 20050701, end: 20050701
  3. BEXTRA [Suspect]
     Indication: ARTHRALGIA
  4. VITAMINS (VITAMINS) [Concomitant]
  5. DOXYCYCLINE [Concomitant]
  6. FLOXACIN (NORFLOXACIN) [Concomitant]
  7. METRONIDAZOLE [Concomitant]

REACTIONS (7)
  - CARDIAC MURMUR [None]
  - CHLAMYDIAL INFECTION [None]
  - EPISTAXIS [None]
  - INFECTIOUS MONONUCLEOSIS [None]
  - METRORRHAGIA [None]
  - NASOPHARYNGITIS [None]
  - PELVIC INFLAMMATORY DISEASE [None]
